FAERS Safety Report 7677153-5 (Version None)
Quarter: 2011Q3

REPORT INFORMATION
  Report Type: 
  Country: None (occurrence: None)
  Receive Date: 20110811
  Receipt Date: 20110802
  Transmission Date: 20111222
  Serious: Yes (Death, Hospitalization, Other)
  Sender: FDA-Public Use
  Company Number: FR-MPIJNJ-2011-01914

PATIENT

DRUGS (3)
  1. RITUXIMAB [Suspect]
     Dosage: UNK
     Route: 065
     Dates: start: 20110228
  2. BENDAMUSTINE [Suspect]
     Dosage: UNK
     Route: 065
     Dates: start: 20110228
  3. VELCADE [Suspect]
     Dosage: 2.4 MG, UNK
     Route: 042
     Dates: start: 20101206, end: 20110106

REACTIONS (2)
  - NEUROPATHY PERIPHERAL [None]
  - MENINGOENCEPHALITIS HERPETIC [None]
